FAERS Safety Report 10094346 (Version 3)
Quarter: 2014Q2

REPORT INFORMATION
  Report Type: Spontaneous
  Country: FR (occurrence: FR)
  Receive Date: 20140422
  Receipt Date: 20140613
  Transmission Date: 20141212
  Serious: Yes (Hospitalization, Other)
  Sender: FDA-Public Use
  Company Number: FR-ROCHE-1381151

PATIENT
  Age: 58 Year
  Sex: Female

DRUGS (3)
  1. ROCEPHINE [Suspect]
     Indication: LUNG DISORDER
     Route: 030
     Dates: start: 20140211, end: 20140217
  2. ROCEPHINE [Suspect]
     Indication: ALCOHOLIC
  3. SOLU-MEDROL [Concomitant]
     Indication: LUNG DISORDER
     Route: 030
     Dates: start: 20140211, end: 20140215

REACTIONS (2)
  - Skin necrosis [Not Recovered/Not Resolved]
  - Injection site haematoma [Unknown]
